FAERS Safety Report 4800092-1 (Version None)
Quarter: 2005Q4

REPORT INFORMATION
  Report Type: 
  Country: None (occurrence: None)
  Receive Date: 20051012
  Receipt Date: 20051012
  Transmission Date: 20060501
  Serious: Yes (Hospitalization)
  Sender: FDA-Public Use
  Company Number: None

PATIENT
  Sex: Male

DRUGS (2)
  1. MOTRIN [Suspect]
     Indication: LIMB INJURY
     Dosage: PO
     Route: 048
     Dates: start: 20050318
  2. MOTRIN [Suspect]
     Indication: PAIN IN EXTREMITY
     Dosage: PO
     Route: 048
     Dates: start: 20050318

REACTIONS (2)
  - EYE SWELLING [None]
  - SWELLING FACE [None]
